FAERS Safety Report 21528855 (Version 2)
Quarter: 2022Q4

REPORT INFORMATION
  Report Type: Other
  Country: US (occurrence: None)
  Receive Date: 20221031
  Receipt Date: 20221102
  Transmission Date: 20230113
  Serious: Yes (Death)
  Sender: FDA-Public Use
  Company Number: US-ROCHE-3210194

PATIENT
  Age: 56 Year
  Sex: Female

DRUGS (8)
  1. TECENTRIQ [Suspect]
     Active Substance: ATEZOLIZUMAB
     Indication: Malignant neoplasm of unknown primary site
     Dosage: INFUSE 1200MG?DATE OF SERVICE: 20/JUL/2022
     Route: 041
  2. ALBUTEROL [Concomitant]
     Active Substance: ALBUTEROL
  3. COLACE [Concomitant]
     Active Substance: DOCUSATE SODIUM
  4. FOLVITE [Concomitant]
     Active Substance: FOLIC ACID
  5. ZESTRIL [Concomitant]
     Active Substance: LISINOPRIL
  6. PERCOCET [Concomitant]
     Active Substance: ACETAMINOPHEN\OXYCODONE HYDROCHLORIDE
  7. MIRALAX [Concomitant]
     Active Substance: POLYETHYLENE GLYCOL 3350
  8. THIAMINE [Concomitant]
     Active Substance: THIAMINE

REACTIONS (1)
  - Death [Fatal]
